FAERS Safety Report 16134001 (Version 2)
Quarter: 2019Q2

REPORT INFORMATION
  Report Type: Spontaneous
  Country: ES (occurrence: ES)
  Receive Date: 20190329
  Receipt Date: 20190424
  Transmission Date: 20190711
  Serious: Yes (Hospitalization)
  Sender: FDA-Public Use
  Company Number: ES-ELI_LILLY_AND_COMPANY-ES201903014226

PATIENT
  Age: 63 Year
  Sex: Male

DRUGS (7)
  1. LEFLUNOMIDE. [Concomitant]
     Active Substance: LEFLUNOMIDE
     Indication: PRODUCT USED FOR UNKNOWN INDICATION
     Dosage: 20 MG, UNKNOWN
  2. ATORVASTATIN [Concomitant]
     Active Substance: ATORVASTATIN
     Indication: PRODUCT USED FOR UNKNOWN INDICATION
     Dosage: 40 MG, UNKNOWN
     Route: 065
  3. BISOPROLOL [Concomitant]
     Active Substance: BISOPROLOL
     Indication: PRODUCT USED FOR UNKNOWN INDICATION
     Dosage: 10 MG, UNKNOWN
     Route: 065
  4. ENALAPRIL [Concomitant]
     Active Substance: ENALAPRIL
     Indication: PRODUCT USED FOR UNKNOWN INDICATION
     Dosage: 10 MG, UNKNOWN
     Route: 065
  5. ISONIAZIDE [Concomitant]
     Active Substance: ISONIAZID
     Indication: PROPHYLACTIC CHEMOTHERAPY
     Dosage: 300 MG, UNKNOWN
     Route: 065
  6. OLUMIANT [Suspect]
     Active Substance: BARICITINIB
     Indication: RHEUMATOID ARTHRITIS
     Dosage: 4 MG, DAILY
     Route: 065
     Dates: start: 20190122
  7. PREDNISONE. [Concomitant]
     Active Substance: PREDNISONE
     Indication: PRODUCT USED FOR UNKNOWN INDICATION
     Dosage: 5 MG, UNKNOWN
     Route: 065

REACTIONS (1)
  - Urinary tract infection [Recovered/Resolved]

NARRATIVE: CASE EVENT DATE: 20190225
